FAERS Safety Report 8887502 (Version 1)
Quarter: 2012Q4

REPORT INFORMATION
  Report Type: Spontaneous
  Country: US (occurrence: None)
  Receive Date: 20121101
  Receipt Date: 20121101
  Transmission Date: 20130627
  Serious: Yes (Hospitalization)
  Sender: FDA-Public Use
  Company Number: None

PATIENT
  Age: 78 Year
  Sex: Female
  Weight: 81.1 kg

DRUGS (17)
  1. PRADAXA [Suspect]
     Indication: ATRIAL FIBRILLATION
     Dosage: CHRONIC
     Route: 048
  2. ASA [Suspect]
     Indication: CORONARY ARTERY DISEASE
     Dosage: CHRONIC
     Route: 048
  3. PLETAL [Suspect]
     Dosage: CHRONIC
     Route: 048
  4. INSULIN [Concomitant]
  5. COREG [Concomitant]
  6. ZOCOR [Concomitant]
  7. PROTONIX [Concomitant]
  8. TYLENOL [Concomitant]
  9. TIKOSYN [Concomitant]
  10. VIT B [Concomitant]
  11. VIT E [Concomitant]
  12. VIT D [Concomitant]
  13. METFORMIN [Concomitant]
  14. FLUOXETINE [Concomitant]
  15. OMEPRAZOLE [Concomitant]
  16. ZOFRAN [Concomitant]
  17. NORCO [Concomitant]

REACTIONS (7)
  - Pain in extremity [None]
  - Melaena [None]
  - Haemoglobin decreased [None]
  - Haematocrit decreased [None]
  - Dyspepsia [None]
  - Abdominal distension [None]
  - Refusal of treatment by patient [None]
